FAERS Safety Report 11825083 (Version 2)
Quarter: 2016Q2

REPORT INFORMATION
  Report Type: Report from Study
  Country: GB (occurrence: GB)
  Receive Date: 20151211
  Receipt Date: 20160627
  Transmission Date: 20160815
  Serious: Yes (Death, Hospitalization, Other)
  Sender: FDA-Public Use
  Company Number: GB-AMGEN-GBRSL2015082317

PATIENT
  Age: 81 Year
  Sex: Male

DRUGS (1)
  1. ARANESP [Suspect]
     Active Substance: DARBEPOETIN ALFA
     Indication: PRODUCT USED FOR UNKNOWN INDICATION
     Dosage: 50 MUG, Q2WK
     Route: 065

REACTIONS (6)
  - Gangrene [Unknown]
  - Intestinal perforation [Unknown]
  - Urinary retention [Unknown]
  - Cardiac pacemaker insertion [Unknown]
  - Hip arthroplasty [Unknown]
  - Death [Fatal]
